FAERS Safety Report 9132772 (Version 1)
Quarter: 2013Q1

REPORT INFORMATION
  Report Type: Spontaneous
  Country: US (occurrence: US)
  Receive Date: 20130128
  Receipt Date: 20130128
  Transmission Date: 20140127
  Serious: Yes (Other)
  Sender: FDA-Public Use
  Company Number: US-COVIDIEN/TYCO HEALTHCARE/MALLINCKRODT-T201204522

PATIENT
  Sex: 0
  Weight: 22 kg

DRUGS (1)
  1. GABLOFEN [Suspect]
     Indication: MUSCLE SPASTICITY
     Dosage: 581.0 MCG/ML
     Route: 037

REACTIONS (5)
  - Withdrawal syndrome [Unknown]
  - Hypertonia [Unknown]
  - No therapeutic response [Unknown]
  - Device component issue [Unknown]
  - Device failure [Unknown]
